FAERS Safety Report 20964313 (Version 4)
Quarter: 2022Q3

REPORT INFORMATION
  Report Type: Spontaneous
  Country: NL (occurrence: NL)
  Receive Date: 20220615
  Receipt Date: 20220908
  Transmission Date: 20221026
  Serious: Yes (Other)
  Sender: FDA-Public Use
  Company Number: NL-EMA-DD-20180406-sandevhp-112202

PATIENT
  Age: 64 Year
  Sex: Female

DRUGS (9)
  1. ONDANSETRON [Suspect]
     Active Substance: ONDANSETRON
     Indication: Premedication
     Dosage: UNK
     Route: 065
  2. IRINOTECAN [Suspect]
     Active Substance: IRINOTECAN
     Dosage: CYCLE ONE, PEGYLATED LIPOSOMAL INFUSION
     Route: 065
  3. FLUOROURACIL\LEUCOVORIN CALCIUM\OXALIPLATIN [Suspect]
     Active Substance: FLUOROURACIL\LEUCOVORIN CALCIUM\OXALIPLATIN
     Dosage: UNK
     Route: 065
  4. LEUCOVORIN [Suspect]
     Active Substance: LEUCOVORIN
     Dosage: CYCLE ONE, INFUSION
     Route: 065
  5. FLUOROURACIL\IRINOTECAN\LEUCOVORIN [Suspect]
     Active Substance: FLUOROURACIL\IRINOTECAN\LEUCOVORIN
     Dosage: UNK
     Route: 065
  6. FLUOROURACIL\IRINOTECAN\LEUCOVORIN [Suspect]
     Active Substance: FLUOROURACIL\IRINOTECAN\LEUCOVORIN
     Dosage: CYCLE TWO
     Route: 065
  7. PALONOSETRON [Suspect]
     Active Substance: PALONOSETRON
     Indication: Premedication
     Dosage: UNK
     Route: 065
  8. GRANISETRON [Suspect]
     Active Substance: GRANISETRON
     Dosage: UNK
     Route: 065
  9. DEXAMETHASONE [Concomitant]
     Active Substance: DEXAMETHASONE
     Indication: Premedication
     Dosage: UNK
     Route: 065

REACTIONS (2)
  - Rash [Unknown]
  - Angioedema [Unknown]
